FAERS Safety Report 11510992 (Version 1)
Quarter: 2015Q3

REPORT INFORMATION
  Report Type: Spontaneous
  Country: US (occurrence: US)
  Receive Date: 20150915
  Receipt Date: 20150915
  Transmission Date: 20151125
  Serious: Yes (Other)
  Sender: FDA-Public Use
  Company Number: US-TAKEDA-TPA2013A06155

PATIENT

DRUGS (9)
  1. BYETTA [Concomitant]
     Active Substance: EXENATIDE
     Dosage: 10 IU, QD
     Dates: start: 2007, end: 201104
  2. METFORMIN [Concomitant]
     Active Substance: METFORMIN HYDROCHLORIDE
     Dosage: 1000 MG, QD
     Dates: start: 2004
  3. DIABETA                            /00145301/ [Concomitant]
     Dosage: 5 MG, BID
     Dates: start: 200003, end: 2013
  4. METFORMIN [Concomitant]
     Active Substance: METFORMIN HYDROCHLORIDE
     Dosage: 2000 MG, QD
     Dates: start: 20040816
  5. ACTOS [Suspect]
     Active Substance: PIOGLITAZONE HYDROCHLORIDE
     Indication: TYPE 2 DIABETES MELLITUS
     Dosage: 45 MG, UNK
     Route: 048
     Dates: start: 20000322, end: 20110304
  6. BYETTA [Concomitant]
     Active Substance: EXENATIDE
     Dosage: 10 IU, BID
     Dates: start: 201105, end: 2012
  7. GLUCOPHAGE [Concomitant]
     Active Substance: METFORMIN HYDROCHLORIDE
     Dosage: 2000 MG, QD
     Dates: start: 20020311, end: 20040724
  8. LANTUS [Concomitant]
     Active Substance: INSULIN GLARGINE
     Dosage: 15 MG, QD
     Dates: start: 2011
  9. GLUCOPHAGE [Concomitant]
     Active Substance: METFORMIN HYDROCHLORIDE
     Dosage: 2500 MG, QD
     Dates: start: 20000807, end: 20020210

REACTIONS (1)
  - Bladder transitional cell carcinoma stage II [Unknown]

NARRATIVE: CASE EVENT DATE: 20051007
